FAERS Safety Report 8798941 (Version 6)
Quarter: 2012Q4

REPORT INFORMATION
  Report Type: 
  Country: CH (occurrence: CH)
  Receive Date: 20120920
  Receipt Date: 20121108
  Transmission Date: 20130627
  Serious: Yes (Death, Life-Threatening, Hospitalization, Other)
  Sender: FDA-Public Use
  Company Number: CH-B.I. PHARMACEUTICALS,INC./RIDGEFIELD-2012-AP-00761SI

PATIENT
  Age: 67 Year
  Sex: Female
  Weight: 73 kg

DRUGS (9)
  1. PRADAXA [Suspect]
     Indication: ATRIAL FIBRILLATION
     Dosage: 220 mg
     Route: 048
     Dates: start: 20120810, end: 20120910
  2. PRADAXA [Suspect]
     Indication: ATRIAL FLUTTER
     Dosage: 110 mg
     Route: 048
  3. PRADAXA [Suspect]
     Indication: CEREBROVASCULAR ACCIDENT PROPHYLAXIS
  4. CARDIAC ASS [Suspect]
     Indication: CORONARY ARTERY DISEASE
     Dosage: 100 mg
     Route: 048
     Dates: end: 20120910
  5. NORVASC [Concomitant]
     Indication: HYPERTENSION
     Dosage: 10 mg
     Route: 048
     Dates: end: 20120910
  6. DIAMICRON MR [Concomitant]
     Indication: TYPE 2 DIABETES MELLITUS
     Dosage: 60 mg
     Route: 048
     Dates: end: 20120909
  7. CONCOR [Concomitant]
     Dosage: 5 mg
  8. TOREM [Concomitant]
  9. CRESTOR [Concomitant]

REACTIONS (11)
  - Intestinal infarction [Fatal]
  - Death [Fatal]
  - Procedural haemorrhage [Recovered/Resolved]
  - Coronary artery dissection [Unknown]
  - Aortic dissection [Unknown]
  - Coronary artery stenosis [Unknown]
  - Coagulopathy [Unknown]
  - Ischaemia [Unknown]
  - Nausea [Unknown]
  - Abdominal pain [Unknown]
  - Discomfort [Unknown]
